FAERS Safety Report 6092803-5 (Version None)
Quarter: 2009Q1

REPORT INFORMATION
  Report Type: 
  Country: None (occurrence: None)
  Receive Date: 20090225
  Receipt Date: 20090217
  Transmission Date: 20090719
  Serious: Yes (Hospitalization, Other)
  Sender: FDA-Public Use
  Company Number: US-ROCHE-615118

PATIENT
  Age: 51 Year
  Sex: Male
  Weight: 104 kg

DRUGS (4)
  1. CAPECITABINE [Suspect]
     Indication: COLORECTAL CANCER
     Route: 048
     Dates: start: 20081125, end: 20090118
  2. CAPECITABINE [Suspect]
     Dosage: REPORTED AS: 1 DOSE LEVEL REDUCTION.
     Route: 048
     Dates: start: 20090203
  3. BEVACIZUMAB [Suspect]
     Indication: COLORECTAL CANCER
     Route: 042
     Dates: start: 20090106
  4. OXALIPLATIN [Suspect]
     Indication: COLORECTAL CANCER
     Route: 042
     Dates: start: 20081125

REACTIONS (2)
  - COLONIC OBSTRUCTION [None]
  - DIARRHOEA [None]
